FAERS Safety Report 24781936 (Version 1)
Quarter: 2024Q4

REPORT INFORMATION
  Report Type: Report from Study
  Country: US (occurrence: US)
  Receive Date: 20241227
  Receipt Date: 20241227
  Transmission Date: 20250115
  Serious: Yes (Other)
  Sender: JOHNSON AND JOHNSON
  Company Number: US-JNJFOC-20241233671

PATIENT

DRUGS (1)
  1. REMICADE [Suspect]
     Active Substance: INFLIXIMAB
     Indication: Colitis ulcerative
     Route: 041

REACTIONS (3)
  - Plasma cell myeloma [Recovered/Resolved]
  - Intervertebral disc compression [Not Recovered/Not Resolved]
  - Fracture [Not Recovered/Not Resolved]

NARRATIVE: CASE EVENT DATE: 20240101
